FAERS Safety Report 15984092 (Version 2)
Quarter: 2019Q1

REPORT INFORMATION
  Report Type: Report from Study
  Country: None (occurrence: US)
  Receive Date: 20190219
  Receipt Date: 20190227
  Transmission Date: 20190418
  Serious: Yes (Hospitalization, Other)
  Sender: FDA-Public Use
  Company Number: US-ABBVIE-19K-163-2664184-00

PATIENT
  Age: 67 Year
  Sex: Male
  Weight: 77.18 kg

DRUGS (2)
  1. MAVYRET [Suspect]
     Active Substance: GLECAPREVIR\PIBRENTASVIR
     Indication: HEPATITIS C
     Route: 048
     Dates: start: 20181213, end: 20190207
  2. METFORMIN [Concomitant]
     Active Substance: METFORMIN HYDROCHLORIDE
     Indication: PRODUCT USED FOR UNKNOWN INDICATION

REACTIONS (5)
  - Musculoskeletal pain [Not Recovered/Not Resolved]
  - Road traffic accident [Recovered/Resolved]
  - Loss of consciousness [Recovered/Resolved]
  - Multiple fractures [Recovering/Resolving]
  - Cervical vertebral fracture [Not Recovered/Not Resolved]

NARRATIVE: CASE EVENT DATE: 201902
